FAERS Safety Report 14432867 (Version 3)
Quarter: 2019Q1

REPORT INFORMATION
  Report Type: Report from Study
  Country: CA (occurrence: CA)
  Receive Date: 20180124
  Receipt Date: 20190102
  Transmission Date: 20190417
  Serious: Yes (Hospitalization)
  Sender: FDA-Public Use
  Company Number: CA-INCYTE CORPORATION-2018IN000321

PATIENT

DRUGS (1)
  1. JAKAVI [Suspect]
     Active Substance: RUXOLITINIB
     Indication: POLYCYTHAEMIA VERA
     Dosage: 10 MG, BID
     Route: 048
     Dates: start: 20171211

REACTIONS (5)
  - Contusion [Recovered/Resolved]
  - Intestinal obstruction [Unknown]
  - Vomiting [Unknown]
  - Blood cholesterol increased [Unknown]
  - Pain in extremity [Unknown]
